FAERS Safety Report 13250004 (Version 2)
Quarter: 2017Q2

REPORT INFORMATION
  Report Type: Spontaneous
  Country: US (occurrence: US)
  Receive Date: 20170218
  Receipt Date: 20170529
  Transmission Date: 20170830
  Serious: No
  Sender: FDA-Public Use
  Company Number: US-TEVA-727526ACC

PATIENT
  Age: 59 Year
  Sex: Female

DRUGS (15)
  1. SIMVASTATIN TAB 20 MG [Concomitant]
  2. MICARDIS TAB 20 MG [Concomitant]
  3. NALTREXONE TAB 50 MG [Concomitant]
  4. TRIAMCINOLON CRE 0.5 % [Concomitant]
  5. VITAMIN D CAP 50000 UNIT [Concomitant]
     Dosage: 50000 UNIT
  6. NAPROXEN. [Concomitant]
     Active Substance: NAPROXEN
  7. COPAXONE [Suspect]
     Active Substance: GLATIRAMER ACETATE
     Indication: MULTIPLE SCLEROSIS
     Dosage: PREFILLED SYRINGE
     Route: 058
     Dates: start: 20150819
  8. HYDRALAZINE TAB 50 MG [Concomitant]
  9. MORPHINE SUL TAB 30 MG ER [Concomitant]
     Dosage: EXTENDED RELEASE TABLET
  10. VVP THYROID TAB 81.25 MG [Concomitant]
  11. SPIRONO/HCTZ TAB 25/25 [Concomitant]
  12. IRBESARTAN TAB 300MG [Concomitant]
  13. RYNATAN TAB 9-25 MG [Concomitant]
     Dosage: 9-25 MG
  14. CLONIDINE TAB 0.1 MG [Concomitant]
  15. CARVEDILOL TAB 25 MG [Concomitant]

REACTIONS (6)
  - Injection site reaction [Unknown]
  - Injection site pain [Unknown]
  - Influenza like illness [Not Recovered/Not Resolved]
  - Musculoskeletal discomfort [Not Recovered/Not Resolved]
  - Injection site pruritus [Unknown]
  - Injection site swelling [Unknown]

NARRATIVE: CASE EVENT DATE: 201610
